FAERS Safety Report 24581055 (Version 1)
Quarter: 2024Q4

REPORT INFORMATION
  Report Type: Spontaneous
  Country: US (occurrence: US)
  Receive Date: 20241105
  Receipt Date: 20241105
  Transmission Date: 20250114
  Serious: No
  Sender: PFIZER
  Company Number: US-PFIZER INC-PV202400141562

PATIENT
  Age: 67 Year
  Sex: Female
  Weight: 59.9 kg

DRUGS (3)
  1. IBRANCE [Suspect]
     Active Substance: PALBOCICLIB
     Indication: Breast cancer stage IV
     Dosage: DAILY FOR 21 DAYS FOLLOWED BY 7 DAYS OFF, THEN REPEAT CYCLE
     Route: 048
     Dates: start: 202308
  2. IBRANCE [Suspect]
     Active Substance: PALBOCICLIB
     Dosage: DAILY FOR 21 DAYS FOLLOWED BY 7 DAYS OFF
     Route: 048
     Dates: start: 20241030
  3. FEMARA [Suspect]
     Active Substance: LETROZOLE
     Dosage: UNK
     Dates: start: 202308

REACTIONS (11)
  - Oropharyngeal pain [Unknown]
  - Oral mucosal blistering [Unknown]
  - Stomatitis [Unknown]
  - Asthenia [Unknown]
  - Nausea [Unknown]
  - Oropharyngeal candidiasis [Unknown]
  - White blood cell count decreased [Unknown]
  - Red cell distribution width increased [Unknown]
  - Mean platelet volume decreased [Unknown]
  - Neutrophil count decreased [Unknown]
  - Monocyte count decreased [Unknown]

NARRATIVE: CASE EVENT DATE: 20241030
